FAERS Safety Report 22168522 (Version 1)
Quarter: 2023Q2

REPORT INFORMATION
  Report Type: Report from Study
  Country: US (occurrence: US)
  Receive Date: 20230403
  Receipt Date: 20230403
  Transmission Date: 20230721
  Serious: Yes (Hospitalization, Other)
  Sender: FDA-Public Use
  Company Number: US-MYLANLABS-2023M1033425

PATIENT
  Sex: Male

DRUGS (6)
  1. SILDENAFIL [Suspect]
     Active Substance: SILDENAFIL
     Indication: Product used for unknown indication
     Dosage: UNK
     Route: 065
  2. TYVASO [Suspect]
     Active Substance: TREPROSTINIL
     Indication: Pulmonary arterial hypertension
     Dosage: UNK, FOUR TIMES A DAY
     Route: 055
     Dates: start: 20230130
  3. TYVASO [Suspect]
     Active Substance: TREPROSTINIL
     Dosage: 16 MICROGRAM, QID
     Route: 055
     Dates: end: 202302
  4. TYVASO [Suspect]
     Active Substance: TREPROSTINIL
     Dosage: 16 MICROGRAM, QID
     Route: 055
     Dates: start: 20230224
  5. TYVASO [Suspect]
     Active Substance: TREPROSTINIL
     Dosage: 48 MICROGRAM, QID
     Route: 055
  6. TYVASO [Suspect]
     Active Substance: TREPROSTINIL
     Dosage: 32 MICROGRAM, QID
     Route: 055

REACTIONS (3)
  - Hypoxia [Unknown]
  - Fatigue [Unknown]
  - Extra dose administered [Unknown]
